FAERS Safety Report 7475102-6 (Version None)
Quarter: 2011Q2

REPORT INFORMATION
  Report Type: 
  Country: None (occurrence: None)
  Receive Date: 20110512
  Receipt Date: 20110422
  Transmission Date: 20111010
  Serious: No
  Sender: FDA-Public Use
  Company Number: US-B.I. PHARMACEUTICALS,INC./RIDGEFIELD-2011-BP-08162BP

PATIENT
  Sex: Female

DRUGS (7)
  1. RAMIPRIL [Concomitant]
  2. 02 [Concomitant]
  3. VITAMIN D [Concomitant]
  4. PRADAXA [Suspect]
     Indication: ANTICOAGULANT THERAPY
     Dosage: 300 MG
     Route: 048
     Dates: start: 20110301
  5. MULTI-VITAMIN [Concomitant]
  6. POTASSIUM [Concomitant]
  7. MAGNESIUM [Concomitant]

REACTIONS (4)
  - BLOOD URINE PRESENT [None]
  - URINARY TRACT INFECTION [None]
  - HAEMATURIA [None]
  - OROPHARYNGEAL PAIN [None]
